FAERS Safety Report 11930530 (Version 2)
Quarter: 2016Q2

REPORT INFORMATION
  Report Type: Report from Study
  Country: NL (occurrence: NL)
  Receive Date: 20160120
  Receipt Date: 20160413
  Transmission Date: 20160815
  Serious: Yes (Other)
  Sender: FDA-Public Use
  Company Number: NL-ABBVIE-16P-114-1539861-00

PATIENT
  Sex: Female
  Weight: 69 kg

DRUGS (3)
  1. LIVIAL [Concomitant]
     Active Substance: TIBOLONE
     Indication: PRODUCT USED FOR UNKNOWN INDICATION
  2. LUCRIN DEPOT [Suspect]
     Active Substance: LEUPROLIDE ACETATE
     Indication: ENDOMETRIOSIS
     Route: 050
     Dates: start: 20131206
  3. LUCRIN DEPOT [Suspect]
     Active Substance: LEUPROLIDE ACETATE
     Indication: VAGINAL HAEMORRHAGE

REACTIONS (9)
  - Insomnia [Recovered/Resolved]
  - Hair growth abnormal [Unknown]
  - Pigmentation disorder [Unknown]
  - Hot flush [Not Recovered/Not Resolved]
  - Gingival bleeding [Not Recovered/Not Resolved]
  - Depression [Not Recovered/Not Resolved]
  - Effusion [Unknown]
  - Insomnia [Not Recovered/Not Resolved]
  - Cyst [Recovered/Resolved]
